FAERS Safety Report 13340959 (Version 3)
Quarter: 2017Q1

REPORT INFORMATION
  Report Type: Report from Study
  Country: CN (occurrence: CN)
  Receive Date: 20170316
  Receipt Date: 20170331
  Transmission Date: 20170428
  Serious: Yes (Death)
  Sender: FDA-Public Use
  Company Number: CN-ROCHE-1906196

PATIENT
  Age: 52 Year
  Sex: Male
  Weight: 80 kg

DRUGS (1)
  1. ALTEPLASE [Suspect]
     Active Substance: ALTEPLASE
     Indication: ISCHAEMIC STROKE
     Dosage: DOSE: 72
     Route: 042
     Dates: start: 20061127

REACTIONS (6)
  - Pyrexia [Fatal]
  - Cardiac failure [Fatal]
  - Haemorrhagic transformation stroke [Fatal]
  - Lung infection [Fatal]
  - Brain herniation [Fatal]
  - Arrhythmia [Fatal]

NARRATIVE: CASE EVENT DATE: 20061130
